FAERS Safety Report 4810879-7 (Version None)
Quarter: 2005Q4

REPORT INFORMATION
  Report Type: 
  Country: None (occurrence: None)
  Receive Date: 20051025
  Receipt Date: 20051025
  Transmission Date: 20060501
  Serious: Yes (Hospitalization)
  Sender: FDA-Public Use
  Company Number: None

PATIENT
  Age: 86 Year
  Sex: Male
  Weight: 86 kg

DRUGS (6)
  1. WARFARIN  2MG  BRISTOL MYERS SQUIBB [Suspect]
     Indication: ATRIAL FIBRILLATION
     Dosage: 2MG/4MG  TH/ROW  PO
     Route: 048
     Dates: start: 20041001, end: 20051024
  2. ALENDRONATE [Concomitant]
  3. HYDROCHLOROTHIAZIDE [Concomitant]
  4. LISINOPRIL [Concomitant]
  5. METOPROLOL [Concomitant]
  6. OMEPRAZOLE [Concomitant]

REACTIONS (2)
  - DIVERTICULITIS [None]
  - RECTAL HAEMORRHAGE [None]
